FAERS Safety Report 24587362 (Version 1)
Quarter: 2024Q4

REPORT INFORMATION
  Report Type: Spontaneous
  Country: US (occurrence: US)
  Receive Date: 20241107
  Receipt Date: 20241107
  Transmission Date: 20250114
  Serious: No
  Sender: BIOGEN
  Company Number: US-BIOGEN-2024BI01263861

PATIENT
  Sex: Male

DRUGS (2)
  1. TYSABRI [Suspect]
     Active Substance: NATALIZUMAB
     Indication: Multiple sclerosis
     Route: 050
     Dates: start: 20150501, end: 202311
  2. TYSABRI [Suspect]
     Active Substance: NATALIZUMAB
     Route: 050

REACTIONS (8)
  - Product dose omission issue [Unknown]
  - Prescribed underdose [Unknown]
  - Paraesthesia [Unknown]
  - Contusion [Unknown]
  - Lower limb fracture [Unknown]
  - Multiple sclerosis [Unknown]
  - Rebound effect [Unknown]
  - Fall [Recovered/Resolved]
